FAERS Safety Report 15578984 (Version 1)
Quarter: 2018Q4

REPORT INFORMATION
  Report Type: Spontaneous
  Country: AU (occurrence: AU)
  Receive Date: 20181102
  Receipt Date: 20181102
  Transmission Date: 20190205
  Serious: Yes (Other)
  Sender: FDA-Public Use
  Company Number: AU-BAXTER-2018BAX026462

PATIENT
  Age: 1 Month
  Sex: Female

DRUGS (7)
  1. STERILE WATER [Suspect]
     Active Substance: WATER
     Indication: MEDICATION DILUTION
     Dosage: COMPOUNDED PRODUCT: VANCOMYCIN (DBL) 1000 MG IN SODIUM CHLORIDE 0.9% 200 ML.
     Route: 042
     Dates: start: 20181006, end: 20181007
  2. VANCOMYCIN (DBL) [Suspect]
     Active Substance: VANCOMYCIN
     Dosage: COMPOUNDED PRODUCT: VANCOMYCIN (DBL) 1000 MG IN SODIUM CHLORIDE 0.9% 200 ML.
     Route: 042
     Dates: start: 20181007, end: 20181008
  3. SODIUM CHLORIDE (VIAFLO) 1000ML [Suspect]
     Active Substance: SODIUM CHLORIDE
     Indication: MEDICATION DILUTION
     Dosage: COMPOUNDED PRODUCT: VANCOMYCIN (DBL) 1000 MG IN SODIUM CHLORIDE 0.9% 200 ML.
     Route: 042
     Dates: start: 20181006, end: 20181007
  4. STERILE WATER [Suspect]
     Active Substance: WATER
     Dosage: COMPOUNDED PRODUCT: VANCOMYCIN (DBL) 1000 MG IN SODIUM CHLORIDE 0.9% 200 ML.
     Route: 042
     Dates: start: 20181007, end: 20181008
  5. SODIUM CHLORIDE (VIAFLO) 1000ML [Suspect]
     Active Substance: SODIUM CHLORIDE
     Dosage: COMPOUNDED PRODUCT: VANCOMYCIN (DBL) 1000 MG IN SODIUM CHLORIDE 0.9% 200 ML.
     Route: 042
     Dates: start: 20181007, end: 20181008
  6. CEFOTAXIME [Suspect]
     Active Substance: CEFOTAXIME SODIUM
     Indication: PRODUCT USED FOR UNKNOWN INDICATION
     Dosage: 90 MG 6 HOURLY
     Route: 042
     Dates: start: 20181006, end: 20181008
  7. VANCOMYCIN (DBL) [Suspect]
     Active Substance: VANCOMYCIN
     Indication: PRODUCT USED FOR UNKNOWN INDICATION
     Dosage: COMPOUNDED PRODUCT: VANCOMYCIN (DBL) 1000 MG IN SODIUM CHLORIDE 0.9% 200 ML.
     Route: 042
     Dates: start: 20181006, end: 20181007

REACTIONS (1)
  - Drug level increased [Recovered/Resolved]

NARRATIVE: CASE EVENT DATE: 20181007
